FAERS Safety Report 23368304 (Version 2)
Quarter: 2024Q1

REPORT INFORMATION
  Report Type: Spontaneous
  Country: US (occurrence: US)
  Receive Date: 20240105
  Receipt Date: 20240111
  Transmission Date: 20240410
  Serious: No
  Sender: FDA-Public Use
  Company Number: US-BIOGEN-2024BI01243577

PATIENT
  Sex: Female

DRUGS (1)
  1. TYSABRI [Suspect]
     Active Substance: NATALIZUMAB
     Indication: Multiple sclerosis
     Route: 050
     Dates: start: 20200821

REACTIONS (4)
  - Infusion site bruising [Unknown]
  - Vein rupture [Recovered/Resolved]
  - Vessel puncture site haemorrhage [Recovered/Resolved]
  - Injection site pruritus [Recovered/Resolved]
